FAERS Safety Report 12788698 (Version 1)
Quarter: 2016Q3

REPORT INFORMATION
  Report Type: Spontaneous
  Country: US (occurrence: US)
  Receive Date: 20160928
  Receipt Date: 20160928
  Transmission Date: 20161109
  Serious: Yes (Disabling)
  Sender: FDA-Public Use
  Company Number: None

PATIENT
  Age: 44 Year
  Sex: Female
  Weight: 49.5 kg

DRUGS (16)
  1. MULTIVITAMIN [Concomitant]
     Active Substance: VITAMINS
  2. FISH OIL [Concomitant]
     Active Substance: FISH OIL
  3. DIGESTIVE ENZYME [Concomitant]
     Active Substance: UNSPECIFIED INGREDIENT
  4. COQ10 [Concomitant]
     Active Substance: UBIDECARENONE
  5. CANDIBACTIN [Concomitant]
  6. GARLIC. [Concomitant]
     Active Substance: GARLIC
  7. ADRENAL [Concomitant]
     Active Substance: EPINEPHRINE
  8. MELATONIN [Concomitant]
     Active Substance: MELATONIN
  9. METHYGUARD [Concomitant]
  10. FIBROMYALGIA [Concomitant]
  11. GLA [Concomitant]
  12. NATURETHOID [Concomitant]
  13. MAGNESIUM [Concomitant]
     Active Substance: MAGNESIUM
  14. PROBIOTICS [Concomitant]
     Active Substance: PROBIOTICS NOS
  15. CIPROFLAXIN [Suspect]
     Active Substance: CIPROFLOXACIN
     Indication: URINARY TRACT INFECTION
     Dates: start: 20140314, end: 20140317
  16. VITAMIN D [Concomitant]
     Active Substance: CHOLECALCIFEROL

REACTIONS (14)
  - Activities of daily living impaired [None]
  - Hypoaesthesia [None]
  - Arthropathy [None]
  - Peripheral swelling [None]
  - Fatigue [None]
  - Food intolerance [None]
  - Gait disturbance [None]
  - Unevaluable event [None]
  - Nerve injury [None]
  - Gastrointestinal disorder [None]
  - Cognitive disorder [None]
  - Insomnia [None]
  - Dry eye [None]
  - Neuropathy peripheral [None]

NARRATIVE: CASE EVENT DATE: 20140314
